FAERS Safety Report 7159178-1 (Version None)
Quarter: 2010Q4

REPORT INFORMATION
  Report Type: 
  Country: None (occurrence: None)
  Receive Date: 20101214
  Receipt Date: 20101206
  Transmission Date: 20110411
  Serious: Yes (Other)
  Sender: FDA-Public Use
  Company Number: CN-PFIZER INC-2010153974

PATIENT
  Age: 76 Year
  Sex: Female

DRUGS (1)
  1. LYRICA [Suspect]
     Indication: POST HERPETIC NEURALGIA
     Dosage: UNK
     Route: 048
     Dates: start: 20101001

REACTIONS (2)
  - FALL [None]
  - MUSCULAR WEAKNESS [None]
